FAERS Safety Report 9593093 (Version 1)
Quarter: 2013Q4

REPORT INFORMATION
  Report Type: Spontaneous
  Country: US (occurrence: None)
  Receive Date: 20131002
  Receipt Date: 20131002
  Transmission Date: 20140711
  Serious: Yes (Death, Life-Threatening)
  Sender: FDA-Public Use
  Company Number: AUR-APL-2013-08120

PATIENT
  Age: 11 Month
  Sex: Male

DRUGS (13)
  1. LEVETIRACETAM [Suspect]
     Indication: STATUS EPILEPTICUS
  2. FOSPHENYTOIN SODIUM [Suspect]
     Dosage: PSL, 20.5 UG/ML
  3. FOSPHENYTOIN SODIUM [Suspect]
     Indication: CONVULSION
     Dosage: PSL, 20.5 UG/ML
  4. LORAZEPAM [Suspect]
  5. MIDAZOLAM [Suspect]
     Dosage: H 12MG/H
  6. MIDAZOLAM [Suspect]
     Indication: CONVULSION
     Dosage: H 12MG/H
  7. PHENOBARBITAL [Suspect]
     Dosage: PSL= 50.2 UG/ML
  8. PENTOBARBITAL [Suspect]
     Dosage: TITRATED TO 3.5 MG/KG/H, 44MG/H
  9. PENTOBARBITAL [Suspect]
     Indication: CONVULSION
     Dosage: TITRATED TO 3.5 MG/KG/H, 44MG/H
  10. PYRIDOXINE [Suspect]
     Indication: PRODUCT USED FOR UNKNOWN INDICATION
  11. TOPIRAMATE [Concomitant]
  12. DOPAMINE (DOPAMINE) [Concomitant]
  13. EPINEPHRINE (EPINEPHRINE) [Concomitant]

REACTIONS (4)
  - Status epilepticus [None]
  - Hemiparesis [None]
  - Myoclonic epilepsy [None]
  - Alpers^ disease [None]
